FAERS Safety Report 11798194 (Version 1)
Quarter: 2015Q4

REPORT INFORMATION
  Report Type: Spontaneous
  Country: US (occurrence: US)
  Receive Date: 20151203
  Receipt Date: 20151203
  Transmission Date: 20160305
  Serious: No
  Sender: FDA-Public Use
  Company Number: US-REGENERON PHARMACEUTICALS, INC.-2015-10667

PATIENT

DRUGS (2)
  1. EYLEA [Suspect]
     Active Substance: AFLIBERCEPT
     Indication: MACULAR DEGENERATION
     Dosage: EVERY 9 WEEKS THEN EVERY 8 WEEKS
     Route: 031
     Dates: start: 2014
  2. EYLEA [Suspect]
     Active Substance: AFLIBERCEPT
     Dosage: EVERY 8 WEEKS
     Route: 031
     Dates: start: 20150714, end: 20150714

REACTIONS (6)
  - Eye pain [Unknown]
  - Visual impairment [Unknown]
  - Eye swelling [Unknown]
  - Facial pain [Unknown]
  - Toothache [Unknown]
  - Ear pain [Unknown]

NARRATIVE: CASE EVENT DATE: 20150714
